FAERS Safety Report 7939791-1 (Version None)
Quarter: 2011Q4

REPORT INFORMATION
  Report Type: 
  Country: None (occurrence: None)
  Receive Date: 20111125
  Receipt Date: 20111122
  Transmission Date: 20120403
  Serious: No
  Sender: FDA-Public Use
  Company Number: PHEH2011US01222

PATIENT
  Sex: Female

DRUGS (9)
  1. TASIGNA [Suspect]
     Indication: CHRONIC MYELOID LEUKAEMIA
     Dosage: 200 MG, BID
     Route: 048
     Dates: start: 20080801
  2. CRESTOR [Concomitant]
     Dosage: UNK UKN, UNK
  3. FUROSEMIDE [Concomitant]
     Dosage: UNK UKN, UNK
  4. CEFPROZIL [Concomitant]
     Dosage: UNK UKN, UNK
  5. PLAVIX [Concomitant]
     Dosage: UNK UKN, UNK
  6. OMEPRAZOLE [Concomitant]
     Dosage: UNK UKN, UNK
  7. BONIVA [Concomitant]
     Dosage: UNK UKN, UNK
  8. METOPROLOL TARTRATE [Concomitant]
     Dosage: UNK UKN, UNK
  9. POTASSIUM ACETATE [Concomitant]
     Dosage: UNK UKN, UNK

REACTIONS (2)
  - WEIGHT INCREASED [None]
  - DYSPNOEA [None]
